FAERS Safety Report 5973096-3 (Version None)
Quarter: 2008Q4

REPORT INFORMATION
  Report Type: 
  Country: None (occurrence: None)
  Receive Date: 20081126
  Receipt Date: 20081126
  Transmission Date: 20090506
  Serious: Yes (Life-Threatening, Hospitalization, Other)
  Sender: FDA-Public Use
  Company Number: None

PATIENT
  Age: 83 Year
  Weight: 70.3075 kg

DRUGS (2)
  1. ARIXTRA [Suspect]
     Indication: ANTICOAGULANT THERAPY
     Dosage: 1 SUBCUTANEOUS INJECTION ONCE DAILY OTHER
     Route: 058
     Dates: start: 20081007, end: 20081012
  2. ARIXTRA [Suspect]
     Indication: KNEE OPERATION
     Dosage: 1 SUBCUTANEOUS INJECTION ONCE DAILY OTHER
     Route: 058
     Dates: start: 20081007, end: 20081012

REACTIONS (2)
  - LOSS OF CONSCIOUSNESS [None]
  - UPPER GASTROINTESTINAL HAEMORRHAGE [None]
